FAERS Safety Report 20046346 (Version 1)
Quarter: 2021Q4

REPORT INFORMATION
  Report Type: Spontaneous
  Country: GB (occurrence: GB)
  Receive Date: 20211109
  Receipt Date: 20211109
  Transmission Date: 20220303
  Serious: Yes (Life-Threatening, Hospitalization)
  Sender: FDA-Public Use
  Company Number: GB-LUPIN PHARMACEUTICALS INC.-2021-21732

PATIENT
  Age: 21 Year
  Sex: Male

DRUGS (20)
  1. CALCIUM [Suspect]
     Active Substance: CALCIUM
     Indication: Hypocalcaemia
     Dosage: 40 MILLILITER, INTRAVENOUS BOLUS, CALCIUM CHLORIDE, STRENGTH 10%
     Route: 042
  2. CALCIUM [Suspect]
     Active Substance: CALCIUM
     Indication: Chemical burn
     Dosage: AT 10 ML/HOUR, INTRAVENOUS INFUSION, CALCIUM CHLORIDE
     Route: 042
  3. CALCIUM [Suspect]
     Active Substance: CALCIUM
     Dosage: UNK, 2.5 %, GEL, TOPICAL, CALCIUM GLUCONATE
     Route: 061
  4. CALCIUM [Suspect]
     Active Substance: CALCIUM
     Dosage: UNK, HOMEMADE (AQUAGEL MIXED WITH 10% CALCIUM GLUCONATE SOLUTION) , GEL, TOPICAL
     Route: 061
  5. CALCIUM [Suspect]
     Active Substance: CALCIUM
     Dosage: 20 ML (0.5 ML/CME2), INJECTION, CALCIUM-GLUCONATE, 10%
     Route: 058
  6. INSULIN NOS [Concomitant]
     Active Substance: INSULIN NOS
     Indication: Hyperkalaemia
     Dosage: UNK, BID, UNK, ADMINISTERED INFUSION OF 10 UNITS; ADMINISTERED TWICE
     Route: 065
  7. DEXTROSE [Concomitant]
     Active Substance: DEXTROSE
     Indication: Hyperkalaemia
     Dosage: 50 MILLILITER, ADMINISTERED TWICE
     Route: 065
  8. MAGNESIUM SULFATE [Concomitant]
     Active Substance: MAGNESIUM SULFATE
     Indication: Hypomagnesaemia
     Dosage: 5 GRAM
     Route: 065
  9. CALCIUM CHLORIDE\POTASSIUM CHLORIDE\SODIUM CHLORIDE\SODIUM LACTATE [Concomitant]
     Active Substance: CALCIUM CHLORIDE\POTASSIUM CHLORIDE\SODIUM CHLORIDE\SODIUM LACTATE
     Indication: Hypotension
     Dosage: 4 LITER
     Route: 065
  10. FRESH FROZEN PLASMA [Concomitant]
     Active Substance: HUMAN PLASMA
     Indication: Coagulopathy
     Dosage: UNK, ADMINISTERED 6 UNITS.
     Route: 065
  11. PROPOFOL [Concomitant]
     Active Substance: PROPOFOL
     Indication: Sedative therapy
     Dosage: UNK
     Route: 065
  12. ALFENTANIL [Concomitant]
     Active Substance: ALFENTANIL
     Indication: Sedative therapy
     Dosage: UNK
     Route: 065
  13. ATRACURIUM [Concomitant]
     Active Substance: ATRACURIUM
     Indication: Sedative therapy
     Dosage: UNK, ADMINISTERED BOLUSES.
     Route: 065
  14. METARAMINOL [Concomitant]
     Active Substance: METARAMINOL
     Indication: Hypotension
     Dosage: UNK
     Route: 065
  15. CHLORAMPHENICOL [Concomitant]
     Active Substance: CHLORAMPHENICOL
     Indication: Product used for unknown indication
     Dosage: UNK
     Route: 061
  16. NOREPINEPHRINE [Concomitant]
     Active Substance: NOREPINEPHRINE
     Indication: Hypotension
     Dosage: UNK
     Route: 065
  17. NOREPINEPHRINE [Concomitant]
     Active Substance: NOREPINEPHRINE
     Dosage: 30 MILLILITER
     Route: 065
  18. EPINEPHRINE [Concomitant]
     Active Substance: EPINEPHRINE
     Indication: Cardiac arrest
     Dosage: 1 MILLIGRAM
     Route: 065
  19. EPINEPHRINE [Concomitant]
     Active Substance: EPINEPHRINE
     Indication: Ventricular fibrillation
     Dosage: 20 MILLILITER
     Route: 065
  20. SODIUM BICARBONATE [Concomitant]
     Active Substance: SODIUM BICARBONATE
     Indication: Metabolic acidosis
     Dosage: UNK, ADMINISTERED BOLUSES.
     Route: 065

REACTIONS (2)
  - Off label use [Unknown]
  - Drug ineffective for unapproved indication [Unknown]
